FAERS Safety Report 9775496 (Version 3)
Quarter: 2014Q1

REPORT INFORMATION
  Report Type: Spontaneous
  Country: JP (occurrence: JP)
  Receive Date: 20131220
  Receipt Date: 20140103
  Transmission Date: 20141002
  Serious: Yes (Death, Other)
  Sender: FDA-Public Use
  Company Number: JP-OTSUKA-JP-2013-15385

PATIENT
  Age: 98 Year
  Sex: Male

DRUGS (8)
  1. SAMSCA [Suspect]
     Indication: ASCITES
     Dosage: 7.5 MG MILLIGRAM(S), DAILY DOSE
     Route: 048
     Dates: start: 20131106, end: 20131107
  2. SAMSCA [Suspect]
     Indication: OEDEMA DUE TO CARDIAC DISEASE
  3. LUPRAC [Concomitant]
     Dosage: 8 MG MILLIGRAM(S), DAILY DOSE
     Route: 048
     Dates: start: 2011
  4. FERO GRADUMET [Concomitant]
     Dosage: 105 MG MILLIGRAM(S), DAILY DOSE
     Route: 048
     Dates: start: 2011
  5. PARIET [Concomitant]
     Dosage: 10 MG MILLIGRAM(S), DAILY DOSE
     Route: 048
     Dates: start: 2011
  6. THYRADIN-S [Concomitant]
     Dosage: 50 MCG, DAILY DOSE
     Route: 048
     Dates: start: 2011
  7. FLAGYL [Concomitant]
     Dosage: 1500 MG MILLIGRAM(S), DAILY DOSE
     Route: 048
     Dates: start: 2013
  8. LASIX [Concomitant]
     Dosage: 20 MG MILLIGRAM(S), DAILY DOSE
     Route: 042

REACTIONS (2)
  - Hypernatraemia [Fatal]
  - Blood pressure decreased [Unknown]
